FAERS Safety Report 9570542 (Version 1)
Quarter: 2013Q3

REPORT INFORMATION
  Report Type: Spontaneous
  Country: US (occurrence: US)
  Receive Date: 20130930
  Receipt Date: 20130930
  Transmission Date: 20140515
  Serious: No
  Sender: FDA-Public Use
  Company Number: US-AMGEN-USASP2013064402

PATIENT
  Age: 70 Year
  Sex: Female

DRUGS (6)
  1. ENBREL [Suspect]
     Indication: PRODUCT USED FOR UNKNOWN INDICATION
     Dosage: 50 MG, QWK
     Route: 058
  2. XANAX [Concomitant]
     Dosage: 0.5 MG, UNK
  3. JANUVIA [Concomitant]
     Dosage: 25 MG, UNK
  4. METFORMIN [Concomitant]
     Dosage: 500 MG, UNK
  5. TARKA [Concomitant]
     Dosage: 1-240 CR
  6. LIPITOR [Concomitant]
     Dosage: 10 MG, UNK

REACTIONS (2)
  - Lymphocyte count increased [Unknown]
  - White blood cell count increased [Unknown]
